FAERS Safety Report 6567268-7 (Version None)
Quarter: 2010Q1

REPORT INFORMATION
  Report Type: 
  Country: None (occurrence: None)
  Receive Date: 20100128
  Receipt Date: 20100114
  Transmission Date: 20100710
  Serious: Yes (Other)
  Sender: FDA-Public Use
  Company Number: A-NJ2009-28268

PATIENT
  Sex: Male

DRUGS (3)
  1. TRACLEER [Suspect]
     Dosage: TRANSPLACENTAL
     Route: 064
  2. REMODULIN (TREPROSTINIL) [Concomitant]
  3. SLIDENAFIL (SILDENAFIL) [Concomitant]

REACTIONS (4)
  - CAESAREAN SECTION [None]
  - MATERNAL DRUGS AFFECTING FOETUS [None]
  - NEONATAL RESPIRATORY DISTRESS SYNDROME [None]
  - PREMATURE BABY [None]
